FAERS Safety Report 5128716-2 (Version None)
Quarter: 2006Q4

REPORT INFORMATION
  Report Type: 
  Country: None (occurrence: None)
  Receive Date: 20061011
  Receipt Date: 20060930
  Transmission Date: 20070319
  Serious: Yes (Other)
  Sender: FDA-Public Use
  Company Number: 2006108857

PATIENT
  Age: 57 Year
  Sex: Female
  Weight: 77.1115 kg

DRUGS (2)
  1. LIPITOR [Suspect]
     Dosage: 10 MG (10 MG, 1 IN 1 D)
  2. PRAVACHOL [Suspect]
     Dosage: 40 MG (1 IN 1 D)
     Dates: start: 20050825, end: 20060115

REACTIONS (2)
  - BLOOD CREATINE PHOSPHOKINASE INCREASED [None]
  - MUSCLE SPASMS [None]
